FAERS Safety Report 8594306-2 (Version None)
Quarter: 2012Q3

REPORT INFORMATION
  Report Type: 
  Country: None (occurrence: None)
  Receive Date: 20120815
  Receipt Date: 20120806
  Transmission Date: 20120928
  Serious: Yes (Other)
  Sender: FDA-Public Use
  Company Number: US-BIOGENIDEC-2012BI029932

PATIENT
  Age: 31 Year
  Sex: Female

DRUGS (3)
  1. AVONEX [Suspect]
     Route: 030
     Dates: start: 20120615
  2. AVONEX [Suspect]
     Indication: MULTIPLE SCLEROSIS
     Route: 030
     Dates: start: 20080311, end: 20101022
  3. AVONEX [Suspect]
     Route: 030
     Dates: start: 20110901

REACTIONS (9)
  - INFLUENZA LIKE ILLNESS [None]
  - THROMBOSIS [None]
  - CONTUSION [None]
  - FIBROMYALGIA [None]
  - ROAD TRAFFIC ACCIDENT [None]
  - SPINAL OSTEOARTHRITIS [None]
  - INSOMNIA [None]
  - VISION BLURRED [None]
  - INJECTION SITE PAIN [None]
